FAERS Safety Report 5530886-9 (Version None)
Quarter: 2007Q4

REPORT INFORMATION
  Report Type: 
  Country: None (occurrence: None)
  Receive Date: 20071130
  Receipt Date: 20071116
  Transmission Date: 20080405
  Serious: Yes (Life-Threatening, Hospitalization)
  Sender: FDA-Public Use
  Company Number: IT-RANBAXY-2007RR-11573

PATIENT

DRUGS (1)
  1. AMOXICILLINA RANBAXY 1 G COMPRESSE SOLUBILI [Suspect]
     Dosage: 500 MG, SINGLE
     Route: 048

REACTIONS (2)
  - ANAPHYLACTIC REACTION [None]
  - MYOCARDIAL INFARCTION [None]
